FAERS Safety Report 23493033 (Version 2)
Quarter: 2024Q1

REPORT INFORMATION
  Report Type: Spontaneous
  Country: IN (occurrence: IN)
  Receive Date: 20240207
  Receipt Date: 20240220
  Transmission Date: 20240410
  Serious: Yes (Other)
  Sender: FDA-Public Use
  Company Number: IN-MYLANLABS-2024M1010509

PATIENT
  Age: 50 Year
  Sex: Female

DRUGS (1)
  1. METHOTREXATE [Suspect]
     Active Substance: METHOTREXATE
     Indication: Rheumatoid arthritis
     Dosage: 50 MG, QW
     Route: 065

REACTIONS (8)
  - Pancytopenia [Recovered/Resolved]
  - Toxicity to various agents [Recovered/Resolved]
  - Mucosal ulceration [Unknown]
  - Hepatic enzyme increased [Recovered/Resolved]
  - Blood creatine increased [Recovered/Resolved]
  - Blood urea increased [Recovered/Resolved]
  - Haemoglobin decreased [Recovered/Resolved]
  - Prescribed overdose [Unknown]
